FAERS Safety Report 4382064-7 (Version None)
Quarter: 2004Q2

REPORT INFORMATION
  Report Type: 
  Country: None (occurrence: None)
  Receive Date: 20040615
  Receipt Date: 20040601
  Transmission Date: 20050107
  Serious: Yes (Hospitalization)
  Sender: FDA-Public Use
  Company Number: 195227

PATIENT
  Age: 43 Year
  Sex: Male
  Weight: 68.0396 kg

DRUGS (4)
  1. AVONEX [Suspect]
     Indication: MULTIPLE SCLEROSIS
     Dosage: 30 MCG QW IM
     Route: 030
     Dates: start: 20000101, end: 20020101
  2. BACLOFEN [Concomitant]
  3. ZANAFLEX [Concomitant]
  4. URECHOLINE [Concomitant]

REACTIONS (4)
  - CONDITION AGGRAVATED [None]
  - MEDICATION ERROR [None]
  - MULTIPLE SCLEROSIS [None]
  - WEIGHT DECREASED [None]
